FAERS Safety Report 5709964-7 (Version None)
Quarter: 2008Q2

REPORT INFORMATION
  Report Type: 
  Country: None (occurrence: None)
  Receive Date: 20080418
  Receipt Date: 20070709
  Transmission Date: 20081010
  Serious: No
  Sender: FDA-Public Use
  Company Number: US-ASTRAZENECA-2007UW13763

PATIENT
  Age: 60 Year
  Sex: Female
  Weight: 48.5 kg

DRUGS (6)
  1. TOPROL-XL [Suspect]
     Indication: HYPERTENSION
     Route: 048
     Dates: start: 20040101
  2. FOSAMAX [Concomitant]
  3. ESTROPIPATE [Concomitant]
  4. SYNTHROID [Concomitant]
  5. LIQUID MV [Concomitant]
  6. VITAMIN D [Concomitant]

REACTIONS (3)
  - BLOOD PRESSURE INCREASED [None]
  - INSOMNIA [None]
  - NIGHTMARE [None]
